FAERS Safety Report 4932220-1 (Version None)
Quarter: 2006Q1

REPORT INFORMATION
  Report Type: 
  Country: None (occurrence: None)
  Receive Date: 20060303
  Receipt Date: 20060221
  Transmission Date: 20060701
  Serious: Yes (Hospitalization)
  Sender: FDA-Public Use
  Company Number: 2006UW02860

PATIENT
  Age: 41 Year
  Sex: Male
  Weight: 98 kg

DRUGS (28)
  1. LISINOPRIL [Suspect]
     Indication: HYPERTENSION
     Route: 048
  2. TMC114 [Suspect]
     Indication: HIV INFECTION
     Route: 048
     Dates: start: 20051222
  3. NORVIR [Suspect]
     Indication: HIV INFECTION
     Route: 048
  4. EPZICOM [Concomitant]
     Indication: HIV INFECTION
  5. METFORMIN HYDROCHLORIDE [Concomitant]
     Indication: DIABETES MELLITUS
  6. VALACYCLOVIR HCL [Concomitant]
     Indication: PROPHYLAXIS
     Route: 048
  7. TERAZOSIN HYDROCHLORIDE [Concomitant]
     Indication: HYPERTENSION
  8. GEMFIBROZIL [Concomitant]
     Indication: HYPERLIPIDAEMIA
  9. TRAZODONE [Concomitant]
     Indication: DEPRESSION
  10. TRAZODONE [Concomitant]
     Indication: INSOMNIA
  11. PREDNISONE [Concomitant]
     Route: 048
     Dates: start: 20060113
  12. PREDNISONE [Concomitant]
     Route: 048
     Dates: start: 20060111
  13. FLUCONAZOLE [Concomitant]
     Route: 048
     Dates: start: 20060113
  14. FLUCONAZOLE [Concomitant]
     Route: 048
     Dates: start: 20060131
  15. CLARITHROMYCIN [Concomitant]
     Route: 048
     Dates: start: 20060113
  16. ETHAMBUTOL [Concomitant]
     Route: 048
     Dates: start: 20060113
  17. CEFTRIAXONE SODIUM [Concomitant]
     Route: 030
     Dates: start: 20060126, end: 20060126
  18. AMOXICILLIN AND CLAVULANATE POTASSIUM [Concomitant]
     Dosage: 875/125 MG
     Route: 048
     Dates: start: 20060126, end: 20060130
  19. HYDROXYZINE HYDROCHLORIDE [Concomitant]
     Route: 048
     Dates: start: 20060126, end: 20060130
  20. GLIPIZIDE [Concomitant]
     Route: 048
     Dates: start: 20060113, end: 20060130
  21. OXYCOCET [Concomitant]
     Route: 048
     Dates: start: 20060131
  22. LEXAPRO [Concomitant]
     Indication: DEPRESSION
  23. LEXAPRO [Concomitant]
     Indication: ANXIETY
  24. VIDEX EC [Concomitant]
     Indication: HIV INFECTION
  25. FUZEON [Concomitant]
     Indication: HIV INFECTION
  26. PROCRIT [Concomitant]
     Indication: ANAEMIA
     Route: 058
  27. BACTRIM [Concomitant]
     Indication: ANTIBIOTIC PROPHYLAXIS
  28. LIPITOR [Concomitant]
     Indication: HYPERLIPIDAEMIA

REACTIONS (19)
  - ANGIONEUROTIC OEDEMA [None]
  - ASTHENIA [None]
  - ASTHMA [None]
  - BACTERIA STOOL IDENTIFIED [None]
  - DEHYDRATION [None]
  - DIARRHOEA [None]
  - DYSPNOEA [None]
  - HEADACHE [None]
  - IMMUNE RECONSTITUTION SYNDROME [None]
  - MENINGITIS CRYPTOCOCCAL [None]
  - MYALGIA [None]
  - MYCOBACTERIUM AVIUM COMPLEX INFECTION [None]
  - PAIN [None]
  - PHARYNGOLARYNGEAL PAIN [None]
  - PRODUCTIVE COUGH [None]
  - PYREXIA [None]
  - RENAL FAILURE ACUTE [None]
  - TONGUE DRY [None]
  - UPPER RESPIRATORY TRACT INFECTION [None]
